FAERS Safety Report 12563648 (Version 1)
Quarter: 2016Q3

REPORT INFORMATION
  Report Type: Spontaneous
  Country: US (occurrence: US)
  Receive Date: 20160715
  Receipt Date: 20160715
  Transmission Date: 20161109
  Serious: Yes (Other)
  Sender: FDA-Public Use
  Company Number: US-ASTRAZENECA-2016SE74909

PATIENT
  Age: 68 Year
  Sex: Female

DRUGS (18)
  1. SINGULAIR [Concomitant]
     Active Substance: MONTELUKAST SODIUM
  2. DTAP [Concomitant]
     Active Substance: DIPHTHERIA AND TETANUS TOXOIDS AND ACELLULAR PERTUSSIS VACCINE ADSORBED
     Dates: start: 20130407
  3. LUNESTA [Concomitant]
     Active Substance: ESZOPICLONE
  4. BENADRYL [Concomitant]
     Active Substance: DIPHENHYDRAMINE HYDROCHLORIDE
  5. TD [Concomitant]
     Dates: start: 20150304
  6. TOPROL XL [Suspect]
     Active Substance: METOPROLOL SUCCINATE
     Route: 048
  7. ALBUTEROL. [Concomitant]
     Active Substance: ALBUTEROL
     Dosage: PER 1 MG
     Dates: start: 20130323
  8. TAMOXIFEN [Suspect]
     Active Substance: TAMOXIFEN
     Route: 048
  9. FLONASE [Concomitant]
     Active Substance: FLUTICASONE PROPIONATE
     Dosage: 50 MCG/ACT SUSPENSION
  10. PNEUMOCOCCAL POLYSACCHARIDE [Concomitant]
     Dates: start: 20130910
  11. MAXZIDE [Concomitant]
     Active Substance: HYDROCHLOROTHIAZIDE\TRIAMTERENE
     Dosage: 75-90 MG
  12. ZOFRAN ODT [Concomitant]
     Active Substance: ONDANSETRON HYDROCHLORIDE
     Dosage: 4 TABLETS DISPERSIBLE
  13. IPRATROPIUM BROMIDE. [Concomitant]
     Active Substance: IPRATROPIUM BROMIDE
     Dosage: INH SOL
     Dates: start: 20130323
  14. NEURONTIN [Suspect]
     Active Substance: GABAPENTIN
     Dosage: 300.0MG UNKNOWN
     Route: 065
  15. INFLUENZA [Concomitant]
     Active Substance: INFLUENZA VIRUS VACCINE
     Route: 030
     Dates: start: 20131022
  16. PREMARIN VAGINAL [Suspect]
     Active Substance: ESTROGENS, CONJUGATED
     Route: 067
  17. COZAAR [Concomitant]
     Active Substance: LOSARTAN POTASSIUM
  18. PROVENTIL [Concomitant]
     Active Substance: ALBUTEROL
     Dosage: 50 MCG/ACT AERO SOLN

REACTIONS (2)
  - Breast cancer [Unknown]
  - Drug hypersensitivity [Unknown]
